FAERS Safety Report 4663340-7 (Version None)
Quarter: 2005Q2

REPORT INFORMATION
  Report Type: 
  Country: None (occurrence: None)
  Receive Date: 20050513
  Receipt Date: 20050503
  Transmission Date: 20051028
  Serious: Yes (Hospitalization)
  Sender: FDA-Public Use
  Company Number: 2005068206

PATIENT
  Age: 63 Year
  Sex: Male

DRUGS (2)
  1. BEXTRA [Suspect]
     Indication: ILL-DEFINED DISORDER
     Dosage: ORAL
     Route: 048
     Dates: start: 20030101, end: 20040101
  2. ATORVASTATIN CALCIUM [Concomitant]

REACTIONS (10)
  - BODY TEMPERATURE INCREASED [None]
  - HYPERSENSITIVITY [None]
  - RASH VESICULAR [None]
  - SCAB [None]
  - SCAR [None]
  - SENSORY LOSS [None]
  - SKIN REACTION [None]
  - SWELLING FACE [None]
  - ULCER [None]
  - VIRAL INFECTION [None]
